FAERS Safety Report 6354796-2 (Version None)
Quarter: 2009Q3

REPORT INFORMATION
  Report Type: 
  Country: None (occurrence: None)
  Receive Date: 20090909
  Receipt Date: 20080902
  Transmission Date: 20100115
  Serious: Yes (Death, Hospitalization)
  Sender: FDA-Public Use
  Company Number: 2008SP017668

PATIENT
  Age: 30 Year
  Sex: Female

DRUGS (3)
  1. TEMOZOLOMIDE [Suspect]
     Indication: GLIOBLASTOMA MULTIFORME
     Dosage: 75 MG/M2; PO
     Route: 048
  2. TRIMETHOPRIM + SULFAMETHOXAZOLE [Suspect]
     Indication: ANTIFUNGAL PROPHYLAXIS
     Dosage: QD, PO
     Route: 048
  3. PHENYTOIN [Concomitant]

REACTIONS (2)
  - APLASTIC ANAEMIA [None]
  - SEPSIS [None]
